FAERS Safety Report 16863297 (Version 1)
Quarter: 2019Q3

REPORT INFORMATION
  Report Type: Spontaneous
  Country: US (occurrence: US)
  Receive Date: 20190927
  Receipt Date: 20190927
  Transmission Date: 20191005
  Serious: No
  Sender: FDA-Public Use
  Company Number: US-BAYER-2019-166176

PATIENT
  Age: 87 Year
  Sex: Female
  Weight: 81.63 kg

DRUGS (5)
  1. PHILLIPS^ LIQUID GELS STOOL SOFTENER [Suspect]
     Active Substance: DOCUSATE SODIUM
     Indication: CONSTIPATION
  2. PHILLIPS^ LIQUID GELS STOOL SOFTENER [Suspect]
     Active Substance: DOCUSATE SODIUM
     Indication: GASTROINTESTINAL DISORDER
     Dosage: 3 DF, QD
     Route: 048
     Dates: end: 20190908
  3. MILK OF MAGNESIA ORIGINAL [Concomitant]
     Active Substance: MAGNESIUM HYDROXIDE
     Dosage: UNK
  4. MIRALAX [Suspect]
     Active Substance: POLYETHYLENE GLYCOL 3350
     Indication: CONSTIPATION
     Dosage: UNK
  5. PRESERVISION [Concomitant]
     Active Substance: MINERALS\VITAMINS
     Dosage: UNK

REACTIONS (3)
  - Drug ineffective [Unknown]
  - Product use in unapproved indication [None]
  - Discomfort [Unknown]
